FAERS Safety Report 5834298-X (Version None)
Quarter: 2008Q3

REPORT INFORMATION
  Report Type: 
  Country: None (occurrence: None)
  Receive Date: 20080805
  Receipt Date: 20080729
  Transmission Date: 20090109
  Serious: Yes (Death, Hospitalization, Other)
  Sender: FDA-Public Use
  Company Number: PHHY2008JP14316

PATIENT
  Age: 63 Year
  Sex: Female

DRUGS (7)
  1. NEORAL [Suspect]
     Indication: RENAL TRANSPLANT
     Dosage: UNK
     Dates: start: 20070521
  2. SIMULECT [Suspect]
     Indication: RENAL TRANSPLANT
     Dosage: 20 MG
     Route: 042
     Dates: start: 20070521
  3. CELLCEPT [Suspect]
     Indication: RENAL TRANSPLANT
     Dosage: UNK
     Route: 048
     Dates: start: 20070521
  4. PREDNISOLONE [Suspect]
     Indication: RENAL TRANSPLANT
     Dosage: UNK
     Route: 048
     Dates: start: 20070521
  5. STEROIDS NOS [Concomitant]
     Dosage: STEROID PULSE
  6. VENTILATOR [Concomitant]
  7. OXYGEN [Concomitant]

REACTIONS (22)
  - ACUTE RESPIRATORY DISTRESS SYNDROME [None]
  - ASPERGILLOSIS [None]
  - BLOOD CREATININE INCREASED [None]
  - CARDIAC VALVE VEGETATION [None]
  - CEREBELLAR HAEMORRHAGE [None]
  - CHEST X-RAY ABNORMAL [None]
  - CHORDAE TENDINAE RUPTURE [None]
  - DIABETES MELLITUS [None]
  - DYSPNOEA [None]
  - ENDOCARDITIS [None]
  - GRAFT THROMBOSIS [None]
  - HYPOAESTHESIA [None]
  - KIDNEY TRANSPLANT REJECTION [None]
  - MALAISE [None]
  - MITRAL VALVE INCOMPETENCE [None]
  - MITRAL VALVE REPLACEMENT [None]
  - PAIN IN EXTREMITY [None]
  - PNEUMONIA [None]
  - PYREXIA [None]
  - RENAL IMPAIRMENT [None]
  - RENAL INFARCT [None]
  - WHITE BLOOD CELL COUNT INCREASED [None]
